FAERS Safety Report 19966633 (Version 2)
Quarter: 2021Q4

REPORT INFORMATION
  Report Type: Spontaneous
  Country: US (occurrence: US)
  Receive Date: 20211018
  Receipt Date: 20211020
  Transmission Date: 20220304
  Serious: No
  Sender: FDA-Public Use
  Company Number: US-SANOFI-00811445

PATIENT
  Sex: Female

DRUGS (1)
  1. SOLIQUA 100/33 [Suspect]
     Active Substance: INSULIN GLARGINE\LIXISENATIDE
     Indication: Diabetes mellitus
     Dosage: TWICE DAILY; ONCE IN THE MORNING AND ONCE IN THE EVENING
     Route: 065

REACTIONS (3)
  - Glycosylated haemoglobin abnormal [Unknown]
  - Blood glucose abnormal [Unknown]
  - Inappropriate schedule of product administration [Unknown]
